FAERS Safety Report 23757240 (Version 1)
Quarter: 2024Q2

REPORT INFORMATION
  Report Type: Spontaneous
  Country: FR (occurrence: FR)
  Receive Date: 20240418
  Receipt Date: 20240418
  Transmission Date: 20240715
  Serious: Yes (Hospitalization)
  Sender: FDA-Public Use
  Company Number: None

PATIENT
  Age: 52 Year
  Sex: Male
  Weight: 105 kg

DRUGS (3)
  1. CLINDAMYCIN PHOSPHATE [Suspect]
     Active Substance: CLINDAMYCIN PHOSPHATE
     Indication: Bacteraemia
     Route: 042
     Dates: start: 20240301, end: 20240304
  2. AMIKACIN SULFATE [Suspect]
     Active Substance: AMIKACIN SULFATE
     Indication: Bacteraemia
     Dosage: INTRAVENOUS USE
     Dates: start: 20240301, end: 20240301
  3. CEFTRIAXONE SODIUM [Suspect]
     Active Substance: CEFTRIAXONE SODIUM
     Indication: Bacteraemia
     Dosage: ROA: INTRAVENOUS USE
     Dates: start: 20240301, end: 20240305

REACTIONS (2)
  - Rash maculo-papular [Recovering/Resolving]
  - Hypotension [Recovered/Resolved]

NARRATIVE: CASE EVENT DATE: 20240303
